FAERS Safety Report 11046466 (Version 1)
Quarter: 2015Q2

REPORT INFORMATION
  Report Type: Spontaneous
  Country: NL (occurrence: NL)
  Receive Date: 20150420
  Receipt Date: 20150420
  Transmission Date: 20150821
  Serious: Yes (Other)
  Sender: FDA-Public Use
  Company Number: PHHY2015NL042357

PATIENT

DRUGS (1)
  1. PAROXETINE [Suspect]
     Active Substance: PAROXETINE\PAROXETINE HYDROCHLORIDE
     Indication: GENITAL DISORDER MALE
     Dosage: 20 MG, UNK
     Route: 065
     Dates: start: 200805, end: 201011

REACTIONS (6)
  - Ageusia [Recovered/Resolved]
  - Sexual dysfunction [Recovering/Resolving]
  - Ejaculation failure [Recovering/Resolving]
  - Genital disorder male [Recovering/Resolving]
  - Erectile dysfunction [Recovering/Resolving]
  - Anosmia [Recovered/Resolved]
